FAERS Safety Report 6742397-3 (Version None)
Quarter: 2010Q2

REPORT INFORMATION
  Report Type: 
  Country: None (occurrence: None)
  Receive Date: 20100526
  Receipt Date: 20100521
  Transmission Date: 20101027
  Serious: Yes (Hospitalization)
  Sender: FDA-Public Use
  Company Number: FR-EISAI INC.-E2020-06681-SPO-FR

PATIENT
  Sex: Male

DRUGS (8)
  1. ARICEPT [Suspect]
     Route: 048
     Dates: end: 20100503
  2. MEMANTINE HCL [Suspect]
     Route: 048
     Dates: start: 20081209, end: 20100503
  3. CORGARD [Suspect]
     Route: 048
     Dates: end: 20100429
  4. ALPRAZOLAM [Suspect]
     Route: 048
     Dates: start: 20100414, end: 20100429
  5. KARDEGIC [Suspect]
     Route: 048
     Dates: end: 20100429
  6. HALDOL [Suspect]
     Route: 048
     Dates: start: 20100414, end: 20100429
  7. HALDOL [Suspect]
     Route: 030
     Dates: start: 20100429, end: 20100429
  8. EQUANIL [Concomitant]
     Route: 048

REACTIONS (3)
  - LYMPHOPENIA [None]
  - NEUTROPENIA [None]
  - THROMBOCYTOPENIA [None]
